FAERS Safety Report 18171641 (Version 3)
Quarter: 2020Q4

REPORT INFORMATION
  Report Type: Report from Study
  Country: None (occurrence: US)
  Receive Date: 20200820
  Receipt Date: 20201022
  Transmission Date: 20210113
  Serious: Yes (Hospitalization, Other)
  Sender: FDA-Public Use
  Company Number: US-ABBVIE-20K-163-3527591-00

PATIENT
  Sex: Female
  Weight: 69.46 kg

DRUGS (2)
  1. HUMIRA [Suspect]
     Active Substance: ADALIMUMAB
     Indication: PSORIATIC ARTHROPATHY
     Route: 058
     Dates: start: 2008, end: 20200723
  2. HUMIRA [Suspect]
     Active Substance: ADALIMUMAB
     Route: 058
     Dates: start: 20200909

REACTIONS (7)
  - Melanocytic naevus [Recovered/Resolved]
  - Arthritis [Not Recovered/Not Resolved]
  - Foot operation [Unknown]
  - Pain in extremity [Not Recovered/Not Resolved]
  - Post procedural complication [Unknown]
  - Skin hypertrophy [Unknown]
  - Joint ankylosis [Recovered/Resolved]
